FAERS Safety Report 5235792-5 (Version None)
Quarter: 2007Q1

REPORT INFORMATION
  Report Type: 
  Country: None (occurrence: None)
  Receive Date: 20070212
  Receipt Date: 20070131
  Transmission Date: 20070707
  Serious: Yes (Hospitalization)
  Sender: FDA-Public Use
  Company Number: CM-MERCK-0701USA02970

PATIENT
  Age: 14 Year
  Sex: Female

DRUGS (1)
  1. STROMECTOL [Suspect]
     Route: 048
     Dates: start: 20061229, end: 20061229

REACTIONS (8)
  - ASTHENIA [None]
  - BALANCE DISORDER [None]
  - COMA [None]
  - CONJUNCTIVAL HAEMORRHAGE [None]
  - DECUBITUS ULCER [None]
  - PRURITUS [None]
  - PYREXIA [None]
  - SWELLING FACE [None]
